FAERS Safety Report 23871129 (Version 1)
Quarter: 2024Q2

REPORT INFORMATION
  Report Type: Spontaneous
  Country: US (occurrence: US)
  Receive Date: 20240518
  Receipt Date: 20240518
  Transmission Date: 20240715
  Serious: Yes (Other)
  Sender: FDA-Public Use
  Company Number: US-AMGEN-USASP2024094602

PATIENT

DRUGS (1)
  1. RITUXIMAB [Suspect]
     Active Substance: RITUXIMAB
     Indication: Neuromyelitis optica spectrum disorder
     Dosage: 1000 MILLIGRAM, Q6MO
     Route: 065

REACTIONS (13)
  - Neuromyelitis optica spectrum disorder [Unknown]
  - Encephalopathy [Unknown]
  - Hypogammaglobulinaemia [Unknown]
  - Ataxia [Unknown]
  - Treatment delayed [Unknown]
  - Coagulopathy [Unknown]
  - Brain fog [Unknown]
  - Headache [Unknown]
  - Throat irritation [Unknown]
  - Infection [Recovered/Resolved]
  - Pruritus [Unknown]
  - Urinary tract infection [Recovered/Resolved]
  - Off label use [Unknown]
